FAERS Safety Report 8415303-3 (Version None)
Quarter: 2012Q2

REPORT INFORMATION
  Report Type: 
  Country: None (occurrence: None)
  Receive Date: 20120606
  Receipt Date: 20120524
  Transmission Date: 20120825
  Serious: No
  Sender: FDA-Public Use
  Company Number: US-ASTRAZENECA-2012SE30763

PATIENT
  Age: 54 Year
  Sex: Male

DRUGS (4)
  1. TRAZODONE HCL [Suspect]
     Route: 065
  2. SEROQUEL [Suspect]
     Indication: POST-TRAUMATIC STRESS DISORDER
     Route: 048
     Dates: start: 20060101
  3. SEROQUEL [Suspect]
     Indication: DEPRESSION
     Route: 048
     Dates: start: 20060101
  4. SEROQUEL [Suspect]
     Indication: SLEEP DISORDER
     Route: 048
     Dates: start: 20060101

REACTIONS (7)
  - MALAISE [None]
  - OFF LABEL USE [None]
  - DEPRESSION [None]
  - DRUG DOSE OMISSION [None]
  - IRRITABILITY [None]
  - DRUG INEFFECTIVE [None]
  - INSOMNIA [None]
